FAERS Safety Report 18197593 (Version 2)
Quarter: 2020Q4

REPORT INFORMATION
  Report Type: Spontaneous
  Country: ES (occurrence: ES)
  Receive Date: 20200826
  Receipt Date: 20201031
  Transmission Date: 20210113
  Serious: Yes (Hospitalization, Other)
  Sender: FDA-Public Use
  Company Number: ES-LUPIN PHARMACEUTICALS INC.-2020-05030

PATIENT
  Age: 66 Year
  Sex: Female

DRUGS (1)
  1. METRONIDAZOLE. [Suspect]
     Active Substance: METRONIDAZOLE
     Indication: PRODUCT USED FOR UNKNOWN INDICATION
     Dosage: UNK
     Route: 065

REACTIONS (8)
  - Muscular weakness [Recovering/Resolving]
  - Ataxia [Recovering/Resolving]
  - Frontotemporal dementia [Recovering/Resolving]
  - Dysarthria [Recovering/Resolving]
  - Loss of proprioception [Recovering/Resolving]
  - Neurotoxicity [Recovering/Resolving]
  - Nystagmus [Recovering/Resolving]
  - Decreased vibratory sense [Recovering/Resolving]
